FAERS Safety Report 11847847 (Version 1)
Quarter: 2015Q4

REPORT INFORMATION
  Report Type: Spontaneous
  Country: US (occurrence: US)
  Receive Date: 20151217
  Receipt Date: 20151217
  Transmission Date: 20160305
  Serious: Yes (Hospitalization)
  Sender: FDA-Public Use
  Company Number: US-ELI_LILLY_AND_COMPANY-US201512003690

PATIENT
  Sex: Male

DRUGS (2)
  1. HUMALOG [Suspect]
     Active Substance: INSULIN LISPRO
     Indication: PRODUCT USED FOR UNKNOWN INDICATION
     Dosage: UNK, UNKNOWN
     Route: 065
     Dates: start: 1993
  2. BACLOFEN. [Suspect]
     Active Substance: BACLOFEN
     Indication: MIGRAINE
     Dosage: UNK, UNKNOWN
     Route: 065

REACTIONS (13)
  - Nerve injury [Recovering/Resolving]
  - Retinal disorder [Not Recovered/Not Resolved]
  - Tremor [Unknown]
  - Arteriovenous fistula site haemorrhage [Unknown]
  - Blood potassium increased [Recovered/Resolved]
  - Visual impairment [Not Recovered/Not Resolved]
  - Vision blurred [Unknown]
  - Migraine [Unknown]
  - Renal disorder [Unknown]
  - Hallucinations, mixed [Unknown]
  - Nightmare [Unknown]
  - Memory impairment [Recovering/Resolving]
  - Headache [Unknown]

NARRATIVE: CASE EVENT DATE: 1993
